FAERS Safety Report 7878591-8 (Version None)
Quarter: 2011Q4

REPORT INFORMATION
  Report Type: 
  Country: None (occurrence: None)
  Receive Date: 20111101
  Receipt Date: 20111101
  Transmission Date: 20120403
  Serious: Yes (Hospitalization, Other)
  Sender: FDA-Public Use
  Company Number: None

PATIENT
  Age: 76 Year
  Sex: Male
  Weight: 77.11 kg

DRUGS (2)
  1. LEVAQUIN [Suspect]
     Indication: KIDNEY INFECTION
     Dates: start: 20100610, end: 20100703
  2. LEVAQUIN [Suspect]
     Indication: URINARY TRACT INFECTION
     Dates: start: 20100610, end: 20100703

REACTIONS (7)
  - QUALITY OF LIFE DECREASED [None]
  - TENDON PAIN [None]
  - TENDON DISORDER [None]
  - MUSCULAR WEAKNESS [None]
  - FRACTURE [None]
  - ARTHRALGIA [None]
  - DYSSTASIA [None]
